FAERS Safety Report 4723916-5 (Version None)
Quarter: 2005Q3

REPORT INFORMATION
  Report Type: 
  Country: None (occurrence: None)
  Receive Date: 20050722
  Receipt Date: 20050711
  Transmission Date: 20060218
  Serious: Yes (Hospitalization)
  Sender: FDA-Public Use
  Company Number: US015523

PATIENT
  Age: 86 Year
  Sex: Male

DRUGS (11)
  1. GABITRIL [Suspect]
     Indication: NEUROPATHY PERIPHERAL
     Dates: start: 20041020
  2. GABITRIL [Suspect]
     Indication: NEUROPATHY PERIPHERAL
     Dosage: 12 MG QD ORAL
     Route: 048
     Dates: start: 20041001, end: 20050606
  3. GABITRIL [Suspect]
     Indication: NEUROPATHY PERIPHERAL
     Dosage: 16 MG QD ORAL
     Route: 048
     Dates: start: 20050607, end: 20050608
  4. PERCOCET [Concomitant]
  5. LIDODERM [Concomitant]
  6. PROTONIX [Concomitant]
  7. DICYCLOMINE [Concomitant]
  8. FLOMAX [Concomitant]
  9. LISINOPRIL [Concomitant]
  10. METAMUCIL-2 [Concomitant]
  11. VITAMIN SUPPLEMENTS [Concomitant]

REACTIONS (11)
  - AGGRESSION [None]
  - AGITATION [None]
  - BELLIGERENCE [None]
  - CEREBRAL ISCHAEMIA [None]
  - CONVULSION [None]
  - DIZZINESS [None]
  - FALL [None]
  - INCOHERENT [None]
  - MENTAL STATUS CHANGES [None]
  - SPEECH DISORDER [None]
  - UNRESPONSIVE TO VERBAL STIMULI [None]
